FAERS Safety Report 10466165 (Version 1)
Quarter: 2014Q3

REPORT INFORMATION
  Report Type: Report from Study
  Country: CN (occurrence: CN)
  Receive Date: 20140922
  Receipt Date: 20140922
  Transmission Date: 20150326
  Serious: Yes (Other)
  Sender: FDA-Public Use
  Company Number: CN-BRISTOL-MYERS SQUIBB COMPANY-21416508

PATIENT
  Age: 28 Year
  Sex: Female

DRUGS (1)
  1. BYETTA [Suspect]
     Active Substance: EXENATIDE
     Indication: DIABETES MELLITUS
     Dosage: ONGOING
     Route: 058
     Dates: start: 20140912

REACTIONS (2)
  - Nephritis [Unknown]
  - Urine output decreased [Unknown]

NARRATIVE: CASE EVENT DATE: 20140916
